FAERS Safety Report 14481023 (Version 3)
Quarter: 2018Q2

REPORT INFORMATION
  Report Type: Report from Study
  Country: CA (occurrence: CA)
  Receive Date: 20180202
  Receipt Date: 20180523
  Transmission Date: 20180711
  Serious: Yes (Hospitalization, Other)
  Sender: FDA-Public Use
  Company Number: CA-GLAXOSMITHKLINE-CA2018GSK017746

PATIENT
  Age: 53 Year
  Sex: Female

DRUGS (2)
  1. MEPOLIZUMAB [Suspect]
     Active Substance: MEPOLIZUMAB
     Dosage: 100 MG, Z
  2. MEPOLIZUMAB [Suspect]
     Active Substance: MEPOLIZUMAB
     Indication: ASTHMA
     Dosage: 100 MG, Z
     Route: 042
     Dates: start: 20171004

REACTIONS (8)
  - Hypotonia [Unknown]
  - Dyspnoea [Unknown]
  - Viral infection [Unknown]
  - Pneumonia [Unknown]
  - Influenza [Unknown]
  - Pyrexia [Unknown]
  - Coma [Unknown]
  - Pleural infection bacterial [Recovering/Resolving]

NARRATIVE: CASE EVENT DATE: 20180106
